FAERS Safety Report 7336149-3 (Version None)
Quarter: 2011Q1

REPORT INFORMATION
  Report Type: 
  Country: None (occurrence: None)
  Receive Date: 20110302
  Receipt Date: 20110302
  Transmission Date: 20110831
  Serious: No
  Sender: FDA-Public Use
  Company Number: None

PATIENT
  Age: 66 Year
  Sex: Female
  Weight: 72.5755 kg

DRUGS (1)
  1. COLGATE [Suspect]
     Indication: DENTAL DISORDER PROPHYLAXIS
     Dosage: HALF INCH TOOTHPASTE 2-3 TIMES/DAY
     Dates: start: 20101115, end: 20110117

REACTIONS (2)
  - PRODUCT QUALITY ISSUE [None]
  - LIP EXFOLIATION [None]
